FAERS Safety Report 6807859-9 (Version None)
Quarter: 2010Q2

REPORT INFORMATION
  Report Type: 
  Country: None (occurrence: None)
  Receive Date: 20100629
  Receipt Date: 20090127
  Transmission Date: 20101027
  Serious: No
  Sender: FDA-Public Use
  Company Number: US-PFIZER INC-2009162616

PATIENT
  Sex: Female
  Weight: 109 kg

DRUGS (7)
  1. TIKOSYN [Suspect]
     Indication: ATRIAL FIBRILLATION
     Dosage: 250 UG, 2X/DAY
     Route: 048
     Dates: start: 20080101
  2. TOPROL-XL [Suspect]
     Dosage: UNK
  3. AVAPRO [Concomitant]
     Dosage: UNK
  4. LORAZEPAM [Concomitant]
     Dosage: UNK
  5. NEXIUM [Concomitant]
     Dosage: UNK
  6. COUMADIN [Concomitant]
     Dosage: UNK
  7. LOVASTATIN [Concomitant]
     Dosage: UNK

REACTIONS (3)
  - ALOPECIA [None]
  - EATING DISORDER [None]
  - WEIGHT INCREASED [None]
